FAERS Safety Report 6503503-9 (Version None)
Quarter: 2009Q4

REPORT INFORMATION
  Report Type: 
  Country: None (occurrence: None)
  Receive Date: 20091217
  Receipt Date: 20091207
  Transmission Date: 20100525
  Serious: Yes (Hospitalization, Other)
  Sender: FDA-Public Use
  Company Number: BR-PFIZER INC-2009306545

PATIENT
  Age: 80 Year
  Sex: Male

DRUGS (2)
  1. LIPITOR [Suspect]
     Indication: DYSLIPIDAEMIA
     Dosage: 20 MG, UNK
     Route: 048
     Dates: start: 20060101, end: 20090101
  2. LIPITOR [Suspect]
     Indication: ARTERIOSCLEROSIS

REACTIONS (3)
  - DIZZINESS [None]
  - HYPOACUSIS [None]
  - TINNITUS [None]
